FAERS Safety Report 12243447 (Version 1)
Quarter: 2016Q2

REPORT INFORMATION
  Report Type: Spontaneous
  Country: CN (occurrence: CN)
  Receive Date: 20160406
  Receipt Date: 20160406
  Transmission Date: 20160815
  Serious: Yes (Other)
  Sender: FDA-Public Use
  Company Number: CN-ASTRAZENECA-2016SE35110

PATIENT
  Age: 52 Year
  Sex: Female

DRUGS (2)
  1. CISPLATIN. [Concomitant]
     Active Substance: CISPLATIN
     Route: 034
     Dates: start: 20160323
  2. IRESSA [Suspect]
     Active Substance: GEFITINIB
     Indication: LUNG NEOPLASM MALIGNANT
     Route: 048
     Dates: start: 20160321, end: 20160328

REACTIONS (9)
  - Pyrexia [Recovering/Resolving]
  - Palpitations [Recovering/Resolving]
  - Thrombosis [Unknown]
  - Nausea [Recovering/Resolving]
  - Ascites [Unknown]
  - Chest discomfort [Recovering/Resolving]
  - Hypoproteinaemia [Unknown]
  - Anaemia [Unknown]
  - Tachypnoea [Recovering/Resolving]

NARRATIVE: CASE EVENT DATE: 20160324
